FAERS Safety Report 17072382 (Version 1)
Quarter: 2019Q4

REPORT INFORMATION
  Report Type: Spontaneous
  Country: PT (occurrence: PT)
  Receive Date: 20191125
  Receipt Date: 20191125
  Transmission Date: 20200122
  Serious: Yes (Disabling, Other)
  Sender: FDA-Public Use
  Company Number: PT-ELI_LILLY_AND_COMPANY-PT201911010023

PATIENT
  Age: 66 Year
  Sex: Female
  Weight: 63 kg

DRUGS (2)
  1. AMLODIPINE;CANDESARTAN [Concomitant]
     Active Substance: AMLODIPINE\CANDESARTAN CILEXETIL
     Indication: HYPERTENSION
     Dosage: UNK, UNKNOWN
     Route: 065
     Dates: start: 20160627
  2. INSULIN HUMAN [Suspect]
     Active Substance: INSULIN HUMAN
     Indication: TYPE 2 DIABETES MELLITUS
     Dosage: 10 INTERNATIONAL UNIT, EACH EVENING
     Route: 065
     Dates: start: 20160627

REACTIONS (7)
  - Polyneuropathy [Recovered/Resolved]
  - Hypertension [Unknown]
  - Syncope [Unknown]
  - Nausea [Unknown]
  - Hypoglycaemia [Unknown]
  - Dizziness [Unknown]
  - Hyperhidrosis [Unknown]

NARRATIVE: CASE EVENT DATE: 201607
